FAERS Safety Report 14267536 (Version 2)
Quarter: 2018Q1

REPORT INFORMATION
  Report Type: Report from Study
  Country: US (occurrence: US)
  Receive Date: 20171211
  Receipt Date: 20180307
  Transmission Date: 20180508
  Serious: Yes (Hospitalization, Other)
  Sender: FDA-Public Use
  Company Number: US-AMGEN-USASL2017181137

PATIENT
  Age: 64 Year
  Sex: Male

DRUGS (1)
  1. REPATHA [Suspect]
     Active Substance: EVOLOCUMAB
     Indication: HYPERCHOLESTEROLAEMIA
     Dosage: 140 MG, Q2WK
     Route: 065
     Dates: start: 201609

REACTIONS (4)
  - Decreased appetite [Recovering/Resolving]
  - Weight decreased [Unknown]
  - Failure to thrive [Unknown]
  - Thrombosis [Recovered/Resolved]
